FAERS Safety Report 4883420-0 (Version None)
Quarter: 2006Q1

REPORT INFORMATION
  Report Type: 
  Country: None (occurrence: None)
  Receive Date: 20060118
  Receipt Date: 20050718
  Transmission Date: 20060701
  Serious: Yes (Other)
  Sender: FDA-Public Use
  Company Number: US-MERCK-0507USA02851

PATIENT
  Age: 78 Year
  Sex: Male
  Weight: 70 kg

DRUGS (17)
  1. VIOXX [Suspect]
     Indication: PAIN
     Route: 048
     Dates: start: 20010208, end: 20040101
  2. VIOXX [Suspect]
     Indication: ARTHRITIS
     Route: 048
     Dates: start: 20010208, end: 20040101
  3. ZYRTEC [Concomitant]
     Route: 065
  4. TRAMADOL HYDROCHLORIDE [Concomitant]
     Route: 065
  5. VIAGRA [Concomitant]
     Route: 065
  6. ZOLOFT [Concomitant]
     Route: 065
  7. FLONASE [Concomitant]
     Route: 065
  8. CELEBREX [Concomitant]
     Route: 065
  9. NAPROXEN [Concomitant]
     Route: 065
  10. ARICEPT [Concomitant]
     Route: 065
  11. ZOCOR [Concomitant]
     Route: 065
  12. FLOMAX [Concomitant]
     Route: 065
  13. PLAVIX [Concomitant]
     Route: 065
  14. METOPROLOL [Concomitant]
     Route: 065
  15. ALTACE [Concomitant]
     Route: 065
  16. ASPIRIN [Concomitant]
     Route: 065
  17. OCUVITE [Concomitant]
     Route: 065

REACTIONS (1)
  - MYOCARDIAL INFARCTION [None]
